FAERS Safety Report 9752754 (Version 2)
Quarter: 2013Q4

REPORT INFORMATION
  Report Type: Spontaneous
  Country: JP (occurrence: JP)
  Receive Date: 20131213
  Receipt Date: 20131213
  Transmission Date: 20140711
  Serious: Yes (Hospitalization)
  Sender: FDA-Public Use
  Company Number: JP-SANOFI-AVENTIS-2013SA020921

PATIENT
  Age: 71 Year
  Sex: Male

DRUGS (2)
  1. INSULIN GLULISINE [Suspect]
     Indication: TYPE 2 DIABETES MELLITUS
     Dosage: RECEIVED 3 INJECTION DAILY DOSE:0.52 UNIT(S)/KILOGRAM BODYWEIGHT
     Route: 065
     Dates: start: 201010, end: 2012
  2. LANTUS [Concomitant]
     Indication: TYPE 2 DIABETES MELLITUS
     Dosage: ONE INJECTION DAILY
     Route: 065
     Dates: start: 201010, end: 201107

REACTIONS (4)
  - Hyperinsulinaemia [Recovered/Resolved]
  - Anti-insulin antibody increased [Recovering/Resolving]
  - Hyperglycaemia [Recovered/Resolved]
  - Hypoglycaemia [Recovered/Resolved]
